FAERS Safety Report 24989687 (Version 2)
Quarter: 2025Q1

REPORT INFORMATION
  Report Type: Report from Study
  Country: KR (occurrence: KR)
  Receive Date: 20250220
  Receipt Date: 20250223
  Transmission Date: 20250408
  Serious: Yes (Other)
  Sender: ABBVIE
  Company Number: KR-ABBVIE-6139949

PATIENT
  Age: 61 Year
  Sex: Female
  Weight: 51 kg

DRUGS (15)
  1. VENCLEXTA [Suspect]
     Active Substance: VENETOCLAX
     Indication: Acute myeloid leukaemia
     Route: 048
     Dates: start: 20230910, end: 20230910
  2. VENCLEXTA [Suspect]
     Active Substance: VENETOCLAX
     Indication: Acute myeloid leukaemia
     Route: 048
     Dates: start: 20230911, end: 20230911
  3. VENCLEXTA [Suspect]
     Active Substance: VENETOCLAX
     Indication: Acute myeloid leukaemia
     Route: 048
     Dates: start: 20230912, end: 20230923
  4. VENCLEXTA [Suspect]
     Active Substance: VENETOCLAX
     Indication: Acute myeloid leukaemia
     Route: 048
     Dates: start: 20231026, end: 20231108
  5. VENCLEXTA [Suspect]
     Active Substance: VENETOCLAX
     Indication: Acute myeloid leukaemia
     Route: 048
     Dates: start: 20231226, end: 20240108
  6. VIDAZA [Concomitant]
     Active Substance: AZACITIDINE
     Indication: Acute myeloid leukaemia
     Dosage: FORM STRENGTH: 100 MG
     Route: 042
     Dates: start: 20231226, end: 20240104
  7. VIDAZA [Concomitant]
     Active Substance: AZACITIDINE
     Indication: Acute myeloid leukaemia
     Dosage: FORM STRENGTH: 100 MG
     Route: 042
     Dates: start: 20231026, end: 20231103
  8. VIDAZA [Concomitant]
     Active Substance: AZACITIDINE
     Indication: Acute myeloid leukaemia
     Dosage: FORM STRENGTH: 100 MG
     Route: 042
     Dates: start: 20230910, end: 20230916
  9. Zoylex [Concomitant]
     Indication: Infection prophylaxis
     Dosage: FORM STRENGTH: 400 MG
     Route: 048
     Dates: start: 20230910, end: 20231016
  10. CYTARABINE [Concomitant]
     Active Substance: CYTARABINE
     Indication: Acute myeloid leukaemia
     Dosage: 100MG/5ML
     Route: 042
     Dates: start: 20240130, end: 20240205
  11. CEFEPIME [Concomitant]
     Active Substance: CEFEPIME HYDROCHLORIDE
     Indication: Pyrexia
     Route: 042
     Dates: start: 20231201, end: 20231208
  12. DEXRAZOXANE [Concomitant]
     Active Substance: DEXRAZOXANE
     Indication: Cardiovascular event prophylaxis
     Dosage: 500MG
     Route: 042
     Dates: start: 20240130, end: 20240201
  13. DAUNORUBICIN [Concomitant]
     Active Substance: DAUNORUBICIN
     Indication: Acute myeloid leukaemia
     Dosage: FORM STRENGTH: 20 MG
     Route: 042
     Dates: start: 20240130, end: 20240201
  14. Yucozole [Concomitant]
     Indication: Infection prophylaxis
     Dosage: FORM STRENGTH: 50 MG
     Route: 048
     Dates: start: 20230924, end: 20230927
  15. ALLOPURINOL [Concomitant]
     Active Substance: ALLOPURINOL
     Indication: Prophylaxis
     Route: 048
     Dates: start: 20230909, end: 20230912

REACTIONS (3)
  - Vena cava thrombosis [Recovered/Resolved]
  - Insomnia [Recovered/Resolved]
  - Clostridium difficile colitis [Recovered/Resolved]

NARRATIVE: CASE EVENT DATE: 20230918
